FAERS Safety Report 12896177 (Version 1)
Quarter: 2016Q4

REPORT INFORMATION
  Report Type: Spontaneous
  Country: NL (occurrence: NL)
  Receive Date: 20161031
  Receipt Date: 20161031
  Transmission Date: 20170207
  Serious: No
  Sender: FDA-Public Use
  Company Number: NL-JAZZ-2016-NL-017125

PATIENT
  Age: 12 Year

DRUGS (1)
  1. XYREM [Suspect]
     Active Substance: SODIUM OXYBATE
     Indication: PRODUCT USED FOR UNKNOWN INDICATION
     Dosage: 3.5 G, BID
     Route: 048

REACTIONS (1)
  - Product use issue [Unknown]
